FAERS Safety Report 9818284 (Version 1)
Quarter: 2014Q1

REPORT INFORMATION
  Report Type: Spontaneous
  Country: US (occurrence: US)
  Receive Date: 20140115
  Receipt Date: 20140115
  Transmission Date: 20141002
  Serious: Yes (Other)
  Sender: FDA-Public Use
  Company Number: US-BAYER-2014-003735

PATIENT
  Sex: Female

DRUGS (3)
  1. ALEVE CAPLET [Suspect]
     Route: 048
  2. BAYER EXTRA STRENGTH ASPIRIN [Suspect]
     Route: 048
  3. BAYER EXTRA STRENGTH BACK + BODY PAIN [Suspect]
     Route: 048

REACTIONS (4)
  - Ulcer [None]
  - Extra dose administered [None]
  - Incorrect drug administration duration [None]
  - Drug ineffective [None]
